FAERS Safety Report 19821571 (Version 1)
Quarter: 2021Q3

REPORT INFORMATION
  Report Type: Spontaneous
  Country: GB (occurrence: GB)
  Receive Date: 20210913
  Receipt Date: 20210913
  Transmission Date: 20211014
  Serious: Yes (Other)
  Sender: FDA-Public Use
  Company Number: GB-TEVA-2021-GB-1951235

PATIENT
  Age: 56 Year
  Sex: Male

DRUGS (8)
  1. ONDANSETRON [Concomitant]
     Active Substance: ONDANSETRON
     Indication: ILL-DEFINED DISORDER
     Dosage: STRENGTH : 4 MG, F/C
  2. LOPERAMIDE [Concomitant]
     Active Substance: LOPERAMIDE
     Indication: ILL-DEFINED DISORDER
     Dosage: STRENGTH  : 2 MG
  3. METOCLOPRAMIDE. [Concomitant]
     Active Substance: METOCLOPRAMIDE
     Indication: ILL-DEFINED DISORDER
     Dosage: STRENGTH : 10 MG
  4. OXALIPLATIN. [Suspect]
     Active Substance: OXALIPLATIN
     Indication: COLON CANCER
     Dosage: 280MG
     Route: 042
     Dates: start: 20210630
  5. CAPECITABINE. [Suspect]
     Active Substance: CAPECITABINE
     Indication: COLON CANCER
     Dosage: 1800MG
     Route: 048
     Dates: start: 20210630
  6. DIFFLAM [Concomitant]
     Indication: ILL-DEFINED DISORDER
     Dosage: ORAL RINSE 200ML
     Route: 048
  7. CHLORPHENAMINE [Concomitant]
     Active Substance: CHLORPHENIRAMINE MALEATE
     Indication: ILL-DEFINED DISORDER
     Dosage: STRENGTH  : 10MG/ML
  8. DEXAMETASONE [Concomitant]
     Active Substance: DEXAMETHASONE
     Indication: ILL-DEFINED DISORDER
     Dosage: STRENGTH : 6.6MG/2ML

REACTIONS (8)
  - Dyspnoea [Unknown]
  - Diarrhoea [Unknown]
  - Neuropathy peripheral [Unknown]
  - Dysphonia [Unknown]
  - Haematochezia [Unknown]
  - Paraesthesia [Unknown]
  - Body temperature increased [Unknown]
  - Fatigue [Unknown]
